FAERS Safety Report 9649418 (Version 1)
Quarter: 2013Q4

REPORT INFORMATION
  Report Type: Spontaneous
  Country: JP (occurrence: JP)
  Receive Date: 20131028
  Receipt Date: 20131028
  Transmission Date: 20140711
  Serious: Yes (Other)
  Sender: FDA-Public Use
  Company Number: PHHY2013JP117285

PATIENT
  Age: 71 Year
  Sex: Male

DRUGS (4)
  1. 5-FLUOROURACIL [Suspect]
     Indication: COLON CANCER
  2. LEUCOVORIN [Concomitant]
     Indication: COLON CANCER
  3. OXALIPLATIN [Concomitant]
     Indication: COLON CANCER
  4. BEVACIZUMAB [Concomitant]
     Indication: COLON CANCER

REACTIONS (2)
  - Hypothyroidism [Unknown]
  - Fatigue [Recovered/Resolved]
